FAERS Safety Report 5964684-9 (Version None)
Quarter: 2008Q4

REPORT INFORMATION
  Report Type: 
  Country: None (occurrence: None)
  Receive Date: 20081125
  Receipt Date: 20081113
  Transmission Date: 20090506
  Serious: Yes (Other)
  Sender: FDA-Public Use
  Company Number: IL-BAYER-200830705GPV

PATIENT
  Age: 5 Year
  Sex: Male

DRUGS (8)
  1. FLUDARABINE PHOSPHATE [Suspect]
     Indication: BONE MARROW CONDITIONING REGIMEN
     Route: 042
  2. CYTARABINE [Suspect]
     Indication: BONE MARROW CONDITIONING REGIMEN
     Route: 065
  3. ATGAM [Suspect]
     Indication: BONE MARROW CONDITIONING REGIMEN
     Route: 065
  4. CYCLOSPORINE [Suspect]
     Indication: PROPHYLAXIS AGAINST GRAFT VERSUS HOST DISEASE
     Route: 065
  5. POSACONAZOLE [Concomitant]
     Indication: MUCORMYCOSIS
     Route: 048
  6. THYMOGLOBULIN [Concomitant]
     Indication: IMMUNOSUPPRESSANT DRUG THERAPY
     Route: 065
  7. CYCLOSPORINE [Concomitant]
     Indication: IMMUNOSUPPRESSANT DRUG THERAPY
     Route: 065
  8. METHYLPREDNISOLONE 16MG TAB [Concomitant]
     Indication: SERUM SICKNESS
     Route: 065

REACTIONS (3)
  - ENTEROBACTER INFECTION [None]
  - OSTEOMYELITIS [None]
  - STAPHYLOCOCCAL INFECTION [None]
